FAERS Safety Report 6900194-X (Version None)
Quarter: 2010Q3

REPORT INFORMATION
  Report Type: 
  Country: None (occurrence: None)
  Receive Date: 20100803
  Receipt Date: 20100720
  Transmission Date: 20110219
  Serious: Yes (Death)
  Sender: FDA-Public Use
  Company Number: US-ELI_LILLY_AND_COMPANY-US201005000638

PATIENT
  Sex: Female
  Weight: 67.029 kg

DRUGS (7)
  1. PROZAC [Suspect]
     Indication: DEPRESSION
     Dosage: 20 MG, DAILY (1/D)
  2. NORVASC [Concomitant]
     Dosage: 5 MG, UNK
  3. LOPRESSOR [Concomitant]
  4. ACIPHEX [Concomitant]
     Dosage: 20 MG, UNK
  5. HYDROCHLOROTHIAZIDE [Concomitant]
     Dosage: 12.5 MG, UNK
  6. HYDROCODONE BITARTRATE AND ACETAMINOPHEN [Concomitant]
     Dosage: 1 D/F, AS NEEDED
  7. SYNTHROID [Concomitant]
     Dosage: 0.112 UG, UNK

REACTIONS (7)
  - ANEURYSM [None]
  - DIZZINESS [None]
  - DRUG TOXICITY [None]
  - FATIGUE [None]
  - LYMPHADENOPATHY [None]
  - MASS [None]
  - SUBARACHNOID HAEMORRHAGE [None]
